FAERS Safety Report 10036477 (Version 1)
Quarter: 2014Q1

REPORT INFORMATION
  Report Type: Spontaneous
  Country: US (occurrence: US)
  Receive Date: 20140326
  Receipt Date: 20140326
  Transmission Date: 20141002
  Serious: No
  Sender: FDA-Public Use
  Company Number: US-B.I. PHARMACEUTICALS,INC./RIDGEFIELD-2014-BI-11764BP

PATIENT
  Sex: Female
  Weight: 56 kg

DRUGS (2)
  1. SPIRIVA [Suspect]
     Indication: CHRONIC OBSTRUCTIVE PULMONARY DISEASE
     Dosage: 18 MCG
     Route: 055
     Dates: start: 2013, end: 201402
  2. VENTOLIN [Concomitant]
     Dosage: FORMULATION: INHALATION AEROSOL
     Route: 055
     Dates: start: 2013

REACTIONS (2)
  - Increased upper airway secretion [Not Recovered/Not Resolved]
  - Cough [Recovered/Resolved]
